FAERS Safety Report 16061892 (Version 1)
Quarter: 2019Q1

REPORT INFORMATION
  Report Type: Spontaneous
  Country: AU (occurrence: AU)
  Receive Date: 20190312
  Receipt Date: 20190312
  Transmission Date: 20190418
  Serious: Yes (Hospitalization)
  Sender: FDA-Public Use
  Company Number: AU-BAYER-2019-049417

PATIENT
  Sex: Female

DRUGS (7)
  1. CLARATYNE [Suspect]
     Active Substance: LORATADINE
     Dosage: 500 ?G
  2. PACLITAXEL. [Concomitant]
     Active Substance: PACLITAXEL
     Indication: PREMEDICATION
  3. PACLITAXEL. [Concomitant]
     Active Substance: PACLITAXEL
     Indication: CHEMOTHERAPY
  4. PALONOSETRON. [Concomitant]
     Active Substance: PALONOSETRON HYDROCHLORIDE
     Dosage: 0.5 MG, QD
     Route: 042
  5. CARBOPLATIN. [Concomitant]
     Active Substance: CARBOPLATIN
     Indication: PREMEDICATION
  6. ALOXI [Concomitant]
     Active Substance: PALONOSETRON HYDROCHLORIDE
     Indication: PROPHYLAXIS OF NAUSEA AND VOMITING
     Dosage: 500 ?G, QD
     Route: 042
     Dates: start: 20190221, end: 20190221
  7. CARBOPLATIN. [Concomitant]
     Active Substance: CARBOPLATIN
     Indication: CHEMOTHERAPY

REACTIONS (2)
  - Generalised tonic-clonic seizure [Unknown]
  - Incorrect dose administered [Unknown]
